FAERS Safety Report 5867085-7 (Version None)
Quarter: 2008Q3

REPORT INFORMATION
  Report Type: 
  Country: None (occurrence: None)
  Receive Date: 20080902
  Receipt Date: 20080825
  Transmission Date: 20090109
  Serious: Yes (Other)
  Sender: FDA-Public Use
  Company Number: B0534991A

PATIENT
  Sex: Female

DRUGS (1)
  1. LAMICTAL [Suspect]
     Indication: DRUG USE FOR UNKNOWN INDICATION
     Dosage: 50MG TWICE PER DAY
     Route: 065
     Dates: end: 20080824

REACTIONS (5)
  - ABASIA [None]
  - ADVERSE DRUG REACTION [None]
  - DIARRHOEA [None]
  - PARKINSONISM [None]
  - WEIGHT DECREASED [None]
